FAERS Safety Report 4394001-X (Version None)
Quarter: 2004Q3

REPORT INFORMATION
  Report Type: 
  Country: None (occurrence: None)
  Receive Date: 20040709
  Receipt Date: 20040623
  Transmission Date: 20050211
  Serious: Yes (Hospitalization)
  Sender: FDA-Public Use
  Company Number: JP-MERCK-0406USA02205

PATIENT
  Age: 80 Year
  Sex: Female

DRUGS (4)
  1. FOSAMAX [Suspect]
     Route: 048
     Dates: start: 20040401, end: 20040611
  2. CONIEL [Concomitant]
     Route: 048
  3. CALCIUM ASPARTATE [Concomitant]
     Route: 065
  4. OPALMON [Suspect]
     Route: 048
     Dates: start: 20040609, end: 20040611

REACTIONS (1)
  - BLOOD PRESSURE INCREASED [None]
